FAERS Safety Report 22019266 (Version 1)
Quarter: 2023Q1

REPORT INFORMATION
  Report Type: Spontaneous
  Country: BR (occurrence: BR)
  Receive Date: 20230222
  Receipt Date: 20230222
  Transmission Date: 20230417
  Serious: Yes (Other)
  Sender: FDA-Public Use
  Company Number: BR-ORGANON-O2302BRA001642

PATIENT
  Sex: Female
  Weight: 58.5 kg

DRUGS (2)
  1. NUVARING [Suspect]
     Active Substance: ETHINYL ESTRADIOL\ETONOGESTREL
     Indication: Contraception
     Dosage: 1 RING
     Route: 067
  2. NUVARING [Suspect]
     Active Substance: ETHINYL ESTRADIOL\ETONOGESTREL
     Indication: Contraception
     Dosage: 1 RING
     Route: 067

REACTIONS (5)
  - Uterine perforation [Unknown]
  - Vaginal haemorrhage [Unknown]
  - Intra-uterine contraceptive device removal [Unknown]
  - Coital bleeding [Unknown]
  - Incorrect product administration duration [Unknown]
